FAERS Safety Report 14800543 (Version 1)
Quarter: 2018Q2

REPORT INFORMATION
  Report Type: Spontaneous
  Country: GB (occurrence: GB)
  Receive Date: 20180424
  Receipt Date: 20180424
  Transmission Date: 20180711
  Serious: Yes (Other)
  Sender: FDA-Public Use
  Company Number: PHHY2017GB200803

PATIENT
  Age: 73 Year
  Sex: Female

DRUGS (5)
  1. WATER FOR INJECTIONS [Suspect]
     Active Substance: WATER
     Indication: MEDICATION DILUTION
     Route: 058
  2. DESFERAL [Suspect]
     Active Substance: DEFEROXAMINE MESYLATE
     Dosage: 1 G, OVER 8 HOURS
     Route: 058
  3. SODIUM CHLORIDE. [Suspect]
     Active Substance: SODIUM CHLORIDE
     Indication: MEDICATION DILUTION
     Dosage: UNK
     Route: 058
  4. DESFERAL [Suspect]
     Active Substance: DEFEROXAMINE MESYLATE
     Indication: PRODUCT USED FOR UNKNOWN INDICATION
     Dosage: UNK UKN, UNK
     Route: 058
  5. SODIUM CHLORIDE. [Suspect]
     Active Substance: SODIUM CHLORIDE
     Dosage: 41 ML, OVER 8 HOURS
     Route: 058

REACTIONS (5)
  - Rash erythematous [Recovered/Resolved]
  - Disease recurrence [Recovered/Resolved]
  - Injection site pruritus [Not Recovered/Not Resolved]
  - Injection site reaction [Recovered/Resolved]
  - Injection site erythema [Not Recovered/Not Resolved]

NARRATIVE: CASE EVENT DATE: 201711
